FAERS Safety Report 15542254 (Version 2)
Quarter: 2018Q4

REPORT INFORMATION
  Report Type: Spontaneous
  Country: US (occurrence: US)
  Receive Date: 20181023
  Receipt Date: 20181114
  Transmission Date: 20190205
  Serious: Yes (Other)
  Sender: FDA-Public Use
  Company Number: US-JNJFOC-20181030786

PATIENT
  Age: 39 Year
  Sex: Female
  Weight: 83.92 kg

DRUGS (3)
  1. AVEENO CLEAR COMPLEXION DAILY MOISTURIZER [Suspect]
     Active Substance: SALICYLIC ACID
     Indication: DRY SKIN PROPHYLAXIS
     Dosage: TWICE,DIME SIZE
     Route: 061
     Dates: start: 20180910, end: 201809
  2. AVEENO CLEAR COMPLEXION DAILY CLEANSING [Suspect]
     Active Substance: SALICYLIC ACID
     Indication: REMOVAL OF INERT MATTER FROM SKIN OR SUBCUTANEOUS TISSUE
     Dosage: ONE PAD ONCE
     Route: 061
     Dates: start: 20180909, end: 20180911
  3. AVEENO CLEAR COMPLEXION DAILY MOISTURIZER [Suspect]
     Active Substance: SALICYLIC ACID
     Indication: DRY SKIN PROPHYLAXIS
     Route: 061
     Dates: start: 201809, end: 20180912

REACTIONS (7)
  - Application site pruritus [Recovering/Resolving]
  - Application site dryness [Recovering/Resolving]
  - Application site pain [Recovering/Resolving]
  - Application site rash [Recovering/Resolving]
  - Off label use [Unknown]
  - Application site exfoliation [Recovering/Resolving]
  - Application site scab [Recovering/Resolving]

NARRATIVE: CASE EVENT DATE: 20180910
